FAERS Safety Report 21590793 (Version 1)
Quarter: 2022Q4

REPORT INFORMATION
  Report Type: Spontaneous
  Country: UG (occurrence: None)
  Receive Date: 20221111
  Receipt Date: 20221111
  Transmission Date: 20230112
  Serious: Yes (Life-Threatening, Disabling, Other)
  Sender: FDA-Public Use
  Company Number: None

PATIENT
  Age: 72 Year
  Sex: Male
  Weight: 80 kg

DRUGS (4)
  1. MORPHINE SULFATE [Suspect]
     Active Substance: MORPHINE SULFATE
     Indication: Pain
     Dosage: OTHER QUANTITY : 5 MLS;?FREQUENCY : EVERY 4 HOURS;?
     Route: 048
  2. Pressure drugs [Concomitant]
  3. PREDNISOLONE [Concomitant]
     Active Substance: PREDNISOLONE
  4. Toractini [Concomitant]

REACTIONS (6)
  - Mobility decreased [None]
  - Decreased appetite [None]
  - Loss of personal independence in daily activities [None]
  - Pain [None]
  - Family stress [None]
  - Head deformity [None]

NARRATIVE: CASE EVENT DATE: 20221107
